FAERS Safety Report 23394730 (Version 2)
Quarter: 2024Q1

REPORT INFORMATION
  Report Type: Spontaneous
  Country: MY (occurrence: MY)
  Receive Date: 20240112
  Receipt Date: 20240119
  Transmission Date: 20240409
  Serious: Yes (Death, Life-Threatening, Hospitalization)
  Sender: FDA-Public Use
  Company Number: MY-002147023-NVSC2024MY004814

PATIENT

DRUGS (1)
  1. IMATINIB [Suspect]
     Active Substance: IMATINIB
     Indication: Chronic myeloid leukaemia
     Dosage: 600 MG, QD, (100-600 MG DAILY)
     Route: 065
     Dates: start: 20071017, end: 20170509

REACTIONS (5)
  - Salmonella bacteraemia [Fatal]
  - Pneumonia aspiration [Fatal]
  - Viraemia [Fatal]
  - Fungaemia [Fatal]
  - Off label use [Unknown]

NARRATIVE: CASE EVENT DATE: 20170406
